FAERS Safety Report 4984996-5 (Version None)
Quarter: 2006Q2

REPORT INFORMATION
  Report Type: 
  Country: None (occurrence: None)
  Receive Date: 20060422
  Receipt Date: 20060422
  Transmission Date: 20061013
  Serious: Yes (Other)
  Sender: FDA-Public Use
  Company Number: None

PATIENT
  Age: 16 Year
  Sex: Male

DRUGS (1)
  1. CORICIDIN HBP COUGH AND COLD (CHLORPHENIRAMINE MAL/DEX TABLETS [Suspect]
     Dosage: ORAL
     Route: 048

REACTIONS (6)
  - AGITATION [None]
  - APHASIA [None]
  - MUSCLE TWITCHING [None]
  - OVERDOSE [None]
  - PSYCHOTIC DISORDER [None]
  - TREMOR [None]
